FAERS Safety Report 25118690 (Version 1)
Quarter: 2025Q1

REPORT INFORMATION
  Report Type: Spontaneous
  Country: US (occurrence: US)
  Receive Date: 20250325
  Receipt Date: 20250325
  Transmission Date: 20250409
  Serious: No
  Sender: TEVA
  Company Number: US-TEVA-VS-3309120

PATIENT
  Age: 68 Year
  Sex: Female
  Weight: 43 kg

DRUGS (2)
  1. LEVOTHYROXINE [Suspect]
     Active Substance: LEVOTHYROXINE
     Indication: Product used for unknown indication
     Route: 065
  2. LIOTHYRONINE SODIUM [Suspect]
     Active Substance: LIOTHYRONINE SODIUM
     Indication: Hypothyroidism
     Dosage: STRENGTH: 5 MCG
     Route: 048

REACTIONS (4)
  - Food allergy [Not Recovered/Not Resolved]
  - Wrong technique in product usage process [Unknown]
  - White blood cell disorder [Unknown]
  - White blood cell count abnormal [Not Recovered/Not Resolved]
